FAERS Safety Report 17904082 (Version 3)
Quarter: 2020Q3

REPORT INFORMATION
  Report Type: Spontaneous
  Country: JP (occurrence: JP)
  Receive Date: 20200616
  Receipt Date: 20200723
  Transmission Date: 20201103
  Serious: Yes (Death, Other)
  Sender: FDA-Public Use
  Company Number: US-SEATTLE GENETICS-2020SGN02613

PATIENT
  Age: 54 Year
  Sex: Female

DRUGS (1)
  1. ADCETRIS [Suspect]
     Active Substance: BRENTUXIMAB VEDOTIN
     Indication: ANAPLASTIC LARGE CELL LYMPHOMA T- AND NULL-CELL TYPES STAGE IV
     Dosage: 1.8 MG/KG, Q3WEEKS
     Route: 037

REACTIONS (9)
  - Febrile neutropenia [Unknown]
  - Performance status decreased [Unknown]
  - Toxicity to various agents [Unknown]
  - Acute graft versus host disease in skin [Unknown]
  - Neuropathy peripheral [Not Recovered/Not Resolved]
  - Idiopathic pneumonia syndrome [Fatal]
  - Pre-engraftment immune reaction [Unknown]
  - Cystitis haemorrhagic [Unknown]
  - BK virus infection [Unknown]
